FAERS Safety Report 8841429 (Version 1)
Quarter: 2012Q4

REPORT INFORMATION
  Report Type: 
  Country: JP (occurrence: JP)
  Receive Date: 20121015
  Receipt Date: 20121015
  Transmission Date: 20130627
  Serious: Yes (Death, Life-Threatening)
  Sender: FDA-Public Use
  Company Number: JP-ASTELLAS-2012JP009250

PATIENT
  Age: 6 Month
  Sex: Female

DRUGS (3)
  1. PROGRAF [Suspect]
     Indication: STEM CELL TRANSPLANT
     Dosage: UNK
     Route: 065
  2. FLUDARA [Concomitant]
     Route: 065
  3. ALKERAN                            /00006401/ [Concomitant]
     Route: 065

REACTIONS (1)
  - Thrombotic microangiopathy [Fatal]
